FAERS Safety Report 6744948-1 (Version None)
Quarter: 2010Q2

REPORT INFORMATION
  Report Type: 
  Country: None (occurrence: None)
  Receive Date: 20100527
  Receipt Date: 20100519
  Transmission Date: 20101027
  Serious: Yes (Hospitalization, Other)
  Sender: FDA-Public Use
  Company Number: LB-TYCO HEALTHCARE/MALLINCKRODT-T201001186

PATIENT
  Sex: Female
  Weight: 60 kg

DRUGS (1)
  1. OPTIRAY 350 [Suspect]
     Indication: COMPUTERISED TOMOGRAM
     Dosage: 100 ML, SINGLE
     Route: 065

REACTIONS (3)
  - AGITATION [None]
  - ANAPHYLACTIC REACTION [None]
  - CONFUSIONAL STATE [None]
